FAERS Safety Report 24150169 (Version 1)
Quarter: 2024Q3

REPORT INFORMATION
  Report Type: Spontaneous
  Country: CN (occurrence: None)
  Receive Date: 20240730
  Receipt Date: 20240730
  Transmission Date: 20241017
  Serious: Yes (Hospitalization)
  Sender: ASTRAZENECA
  Company Number: 2024A168923

PATIENT
  Age: 13904 Day
  Sex: Female
  Weight: 79.9 kg

DRUGS (1)
  1. DAPAGLIFLOZIN [Suspect]
     Active Substance: DAPAGLIFLOZIN
     Indication: Diabetic complication
     Route: 048
     Dates: start: 20240709, end: 20240711

REACTIONS (2)
  - Blood ketone body increased [Recovering/Resolving]
  - Diabetic ketosis [Recovering/Resolving]

NARRATIVE: CASE EVENT DATE: 20240711
